FAERS Safety Report 19484472 (Version 2)
Quarter: 2021Q3

REPORT INFORMATION
  Report Type: Spontaneous
  Country: GB (occurrence: GB)
  Receive Date: 20210702
  Receipt Date: 20210811
  Transmission Date: 20211014
  Serious: Yes (Other)
  Sender: FDA-Public Use
  Company Number: GB-JNJFOC-20210657176

PATIENT
  Age: 36 Year
  Sex: Female

DRUGS (15)
  1. OVEX [Interacting]
     Active Substance: MEBENDAZOLE
     Indication: PROPHYLAXIS
  2. ASPRIN [Concomitant]
     Active Substance: ASPIRIN
     Indication: PRODUCT USED FOR UNKNOWN INDICATION
  3. EZETIMIBE. [Concomitant]
     Active Substance: EZETIMIBE
     Indication: PRODUCT USED FOR UNKNOWN INDICATION
     Route: 048
  4. VITAMIN E [Concomitant]
     Active Substance: .ALPHA.-TOCOPHEROL
     Indication: PRODUCT USED FOR UNKNOWN INDICATION
  5. OMEGA?6 FATTY ACIDS [Concomitant]
     Active Substance: OMEGA-6 FATTY ACIDS
     Indication: PRODUCT USED FOR UNKNOWN INDICATION
  6. VITAMIN D [ERGOCALCIFEROL] [Concomitant]
     Active Substance: ERGOCALCIFEROL
     Indication: PRODUCT USED FOR UNKNOWN INDICATION
  7. ATORVASTATIN CALCIUM. [Concomitant]
     Active Substance: ATORVASTATIN CALCIUM
     Indication: HYPERLIPIDAEMIA
     Route: 048
  8. FERROUS SULPHATE [FERROUS SULFATE] [Concomitant]
     Active Substance: FERROUS SULFATE
     Indication: PRODUCT USED FOR UNKNOWN INDICATION
  9. OVEX [Suspect]
     Active Substance: MEBENDAZOLE
     Indication: HELMINTHIC INFECTION
     Dosage: 2 DOSES?2WEEKS APART
     Route: 048
     Dates: start: 202104, end: 20210412
  10. LOJUXTA [Interacting]
     Active Substance: LOMITAPIDE MESYLATE
     Route: 048
     Dates: start: 20200528, end: 20210423
  11. VITAMIN C [Concomitant]
     Active Substance: ASCORBIC ACID
  12. LOJUXTA [Interacting]
     Active Substance: LOMITAPIDE MESYLATE
     Indication: TYPE IIA HYPERLIPIDAEMIA
     Route: 048
     Dates: start: 20210501
  13. OMEGA?3 FATTY ACIDS [Concomitant]
     Active Substance: OMEGA-3 FATTY ACIDS
     Indication: PRODUCT USED FOR UNKNOWN INDICATION
  14. OMEGA 9 FATTY ACIDS [Concomitant]
     Indication: PRODUCT USED FOR UNKNOWN INDICATION
  15. REPATHA [Concomitant]
     Active Substance: EVOLOCUMAB
     Indication: HYPERLIPIDAEMIA
     Route: 058

REACTIONS (4)
  - Alanine aminotransferase increased [Recovered/Resolved]
  - Blood creatine phosphokinase increased [Recovered/Resolved]
  - Drug interaction [Recovered/Resolved]
  - Aspartate aminotransferase increased [Recovered/Resolved]

NARRATIVE: CASE EVENT DATE: 20210416
